FAERS Safety Report 10008573 (Version 2)
Quarter: 2014Q1

REPORT INFORMATION
  Report Type: Spontaneous
  Country: US (occurrence: US)
  Receive Date: 20140312
  Receipt Date: 20140312
  Transmission Date: 20141002
  Serious: No
  Sender: FDA-Public Use
  Company Number: US-INCYTE CORPORATION-2012IN000116

PATIENT
  Age: 81 Year
  Sex: Female

DRUGS (4)
  1. JAKAFI [Suspect]
     Indication: PRODUCT USED FOR UNKNOWN INDICATION
     Dosage: 20 MG, BID
     Route: 048
     Dates: start: 20120124
  2. TOPROL [Concomitant]
     Dosage: 150 MG, QD
  3. ASPIRIN [Concomitant]
     Dosage: 81 MG, QD
  4. EXJADE [Concomitant]

REACTIONS (2)
  - Nausea [Not Recovered/Not Resolved]
  - Retching [None]
